FAERS Safety Report 8553914-5 (Version None)
Quarter: 2012Q3

REPORT INFORMATION
  Report Type: 
  Country: None (occurrence: None)
  Receive Date: 20120731
  Receipt Date: 20120724
  Transmission Date: 20120928
  Serious: Yes (Hospitalization)
  Sender: FDA-Public Use
  Company Number: GB-JNJFOC-20120712604

PATIENT
  Sex: Male
  Weight: 115 kg

DRUGS (12)
  1. CLOPIDOGREL [Concomitant]
     Route: 065
     Dates: start: 20110308, end: 20120401
  2. FOLIC ACID [Concomitant]
     Route: 065
     Dates: start: 20030728
  3. BISOPROLOL FUMARATE [Concomitant]
     Route: 065
     Dates: start: 20110308
  4. ETODOLAC [Concomitant]
     Route: 065
     Dates: start: 20050701
  5. RAMIPRIL [Concomitant]
     Route: 065
     Dates: start: 20050701
  6. SIMVASTATIN [Concomitant]
     Route: 065
     Dates: start: 20110308
  7. STELARA [Suspect]
     Indication: PSORIASIS
     Route: 058
     Dates: start: 20120131
  8. METHOTREXATE [Concomitant]
     Route: 065
     Dates: start: 20080805
  9. RANITIDINE [Concomitant]
     Route: 065
     Dates: start: 20110308
  10. ASPIRIN [Concomitant]
     Route: 065
     Dates: start: 20110301
  11. OMEPRAZOLE [Concomitant]
     Route: 065
     Dates: start: 20111101, end: 20120401
  12. ALLOPURINOL [Concomitant]
     Route: 065
     Dates: start: 19820701

REACTIONS (1)
  - ABDOMINAL PAIN [None]
